FAERS Safety Report 22379134 (Version 1)
Quarter: 2023Q2

REPORT INFORMATION
  Report Type: Spontaneous
  Country: US (occurrence: US)
  Receive Date: 20230529
  Receipt Date: 20230529
  Transmission Date: 20230721
  Serious: No
  Sender: FDA-Public Use
  Company Number: US-GALDERMA-US2023007400

PATIENT

DRUGS (11)
  1. PROACTIV MD ADAPALENE ACNE TREATMENT [Suspect]
     Active Substance: ADAPALENE
     Indication: Acne
     Dosage: 1 DOSAGE FORM, QD
     Route: 061
     Dates: start: 202304, end: 20230504
  2. PROACTIV CLEAR SKIN SPF 30 [Concomitant]
     Active Substance: AVOBENZONE\OCTISALATE\OCTOCRYLENE
     Indication: Acne
     Dosage: 1 DOSAGE FORM, BID
     Route: 061
     Dates: start: 202304
  3. PROACTIV CLEAR SKIN SPF 30 [Concomitant]
     Active Substance: AVOBENZONE\OCTISALATE\OCTOCRYLENE
     Dosage: 1 DOSAGE FORM
     Route: 061
     Dates: end: 20230504
  4. Proactiv MD Ultra Gentle Cleanser [Concomitant]
     Indication: Acne
     Dosage: 1 DOSAGE FORM, BID
     Route: 061
     Dates: start: 202304
  5. Proactiv MD Ultra Gentle Cleanser [Concomitant]
     Dosage: 1 DOSAGE FORM
     Route: 061
     Dates: start: 202304, end: 20230504
  6. Proactiv MD Ultra Hydrating Moisturizer [Concomitant]
     Indication: Acne
     Dosage: 1 DOSAGE FORM, BID
     Route: 061
     Dates: start: 202304
  7. Proactiv MD Ultra Hydrating Moisturizer [Concomitant]
     Dosage: 1 DOSAGE FORM
     Route: 061
     Dates: end: 20230504
  8. PROACTIV ACNE BODY WASH [Concomitant]
     Active Substance: SALICYLIC ACID
     Indication: Acne
     Dosage: 1 DOSAGE FORM, BID
     Route: 061
     Dates: start: 202304
  9. PROACTIV ACNE BODY WASH [Concomitant]
     Active Substance: SALICYLIC ACID
     Dosage: 1 DOSAGE FORM
     Route: 061
     Dates: end: 20230504
  10. PROACTIV BLACKHEAD DISSOLVING [Concomitant]
     Active Substance: SALICYLIC ACID
     Indication: Acne
     Dosage: 1 DOSAGE FORM, BID
     Route: 061
     Dates: start: 202304
  11. PROACTIV BLACKHEAD DISSOLVING [Concomitant]
     Active Substance: SALICYLIC ACID
     Dosage: 1 DOSAGE FORM
     Route: 061
     Dates: end: 20230504

REACTIONS (5)
  - Skin irritation [Not Recovered/Not Resolved]
  - Sensitive skin [Not Recovered/Not Resolved]
  - Skin burning sensation [Not Recovered/Not Resolved]
  - Skin exfoliation [Not Recovered/Not Resolved]
  - Dry skin [Not Recovered/Not Resolved]

NARRATIVE: CASE EVENT DATE: 20230401
